FAERS Safety Report 25076806 (Version 1)
Quarter: 2025Q1

REPORT INFORMATION
  Report Type: Spontaneous
  Country: IN (occurrence: IN)
  Receive Date: 20250313
  Receipt Date: 20250313
  Transmission Date: 20250408
  Serious: Yes (Other)
  Sender: PFIZER
  Company Number: IN-PFIZER INC-PV202500028714

PATIENT
  Age: 65 Year
  Sex: Female

DRUGS (1)
  1. AROMASIN [Suspect]
     Active Substance: EXEMESTANE
     Dosage: 25 MG, 1X/DAY
     Route: 048

REACTIONS (9)
  - Breast cancer [Unknown]
  - Recurrent cancer [Unknown]
  - Aspiration [Unknown]
  - Swelling [Unknown]
  - Blood cholesterol increased [Unknown]
  - Blood glucose increased [Unknown]
  - Cholelithiasis [Unknown]
  - Osteopenia [Unknown]
  - Seroma [Unknown]

NARRATIVE: CASE EVENT DATE: 20240823
